FAERS Safety Report 7322734-1 (Version None)
Quarter: 2011Q1

REPORT INFORMATION
  Report Type: 
  Country: None (occurrence: None)
  Receive Date: 20110301
  Receipt Date: 20110217
  Transmission Date: 20110831
  Serious: Yes (Other)
  Sender: FDA-Public Use
  Company Number: GB-JNJFOC-20090905930

PATIENT
  Age: 37 Year
  Sex: Female
  Weight: 55 kg

DRUGS (5)
  1. REMICADE [Suspect]
     Indication: RHEUMATOID ARTHRITIS
     Route: 042
     Dates: start: 20021011, end: 20040423
  2. AZATHIOPRINE [Concomitant]
  3. DICLOFENAC [Concomitant]
  4. FOLIC ACID [Concomitant]
  5. ETANERCEPT [Concomitant]

REACTIONS (3)
  - PREMATURE LABOUR [None]
  - DRUG EXPOSURE BEFORE PREGNANCY [None]
  - INFERTILITY [None]
